FAERS Safety Report 22968651 (Version 3)
Quarter: 2024Q1

REPORT INFORMATION
  Report Type: Spontaneous
  Country: US (occurrence: US)
  Receive Date: 20230921
  Receipt Date: 20240101
  Transmission Date: 20240409
  Serious: Yes (Other)
  Sender: FDA-Public Use
  Company Number: US-JNJFOC-20230948512

PATIENT
  Age: 51 Year
  Sex: Male

DRUGS (1)
  1. REMICADE [Suspect]
     Active Substance: INFLIXIMAB
     Indication: Product used for unknown indication
     Route: 041
     Dates: end: 202304

REACTIONS (2)
  - Fistula [Not Recovered/Not Resolved]
  - Treatment failure [Unknown]

NARRATIVE: CASE EVENT DATE: 20230413
